FAERS Safety Report 6359208-0 (Version None)
Quarter: 2009Q3

REPORT INFORMATION
  Report Type: 
  Country: None (occurrence: None)
  Receive Date: 20090917
  Receipt Date: 20090605
  Transmission Date: 20100115
  Serious: No
  Sender: FDA-Public Use
  Company Number: US-ABBOTT-09P-163-0578406-00

PATIENT
  Sex: Female
  Weight: 104.42 kg

DRUGS (5)
  1. TRILIPIX [Suspect]
     Indication: BLOOD CHOLESTEROL INCREASED
     Dates: start: 20090401, end: 20090604
  2. PLAVIX [Concomitant]
     Indication: STENT PLACEMENT
  3. ASPIRIN [Concomitant]
     Indication: STENT PLACEMENT
  4. DIOVAN [Concomitant]
     Indication: HYPERTENSION
  5. PRAVACHOL [Concomitant]
     Indication: BLOOD CHOLESTEROL INCREASED

REACTIONS (9)
  - ABDOMINAL PAIN UPPER [None]
  - ABNORMAL FAECES [None]
  - ARTHRALGIA [None]
  - BLOOD CREATINE INCREASED [None]
  - BLOOD GLUCOSE INCREASED [None]
  - BLOOD UREA INCREASED [None]
  - MYALGIA [None]
  - NAUSEA [None]
  - PAIN IN EXTREMITY [None]
